FAERS Safety Report 8761987 (Version 1)
Quarter: 2012Q4

REPORT INFORMATION
  Report Type: 
  Country: CA (occurrence: CA)
  Receive Date: 20120829
  Receipt Date: 20120829
  Transmission Date: 20130627
  Serious: Yes (Other)
  Sender: FDA-Public Use
  Company Number: CA-PFIZER INC-2012210114

PATIENT
  Sex: Female

DRUGS (2)
  1. NEURONTIN [Suspect]
     Dosage: 600 mg
  2. NEURONTIN [Suspect]
     Dosage: 800 mg

REACTIONS (1)
  - Walking aid user [Not Recovered/Not Resolved]
